FAERS Safety Report 15004599 (Version 1)
Quarter: 2018Q2

REPORT INFORMATION
  Report Type: Spontaneous
  Country: US (occurrence: US)
  Receive Date: 20180521
  Receipt Date: 20180521
  Transmission Date: 20180711
  Serious: Yes (Hospitalization)
  Sender: FDA-Public Use
  Company Number: None

PATIENT
  Age: 85 Year
  Sex: Female
  Weight: 61.3 kg

DRUGS (8)
  1. CA+VIT D [Concomitant]
  2. SYNTHROID [Concomitant]
     Active Substance: LEVOTHYROXINE SODIUM
  3. CRESTOR [Concomitant]
     Active Substance: ROSUVASTATIN CALCIUM
  4. ECOTRIN [Suspect]
     Active Substance: ASPIRIN
     Indication: CORONARY ARTERY DISEASE
     Dosage: 81 MG NIGHTL, PO
     Route: 048
  5. TRICOR [Concomitant]
     Active Substance: FENOFIBRATE
  6. COREG CR [Concomitant]
     Active Substance: CARVEDILOL PHOSPHATE
  7. ZOLOFT [Concomitant]
     Active Substance: SERTRALINE HYDROCHLORIDE
  8. ELIQUIS [Suspect]
     Active Substance: APIXABAN
     Indication: ATRIAL FIBRILLATION
     Route: 048

REACTIONS (3)
  - Gastrointestinal haemorrhage [None]
  - Haemorrhagic anaemia [None]
  - Arteriovenous malformation [None]

NARRATIVE: CASE EVENT DATE: 20180131
